FAERS Safety Report 19615681 (Version 1)
Quarter: 2021Q3

REPORT INFORMATION
  Report Type: Spontaneous
  Country: US (occurrence: US)
  Receive Date: 20210727
  Receipt Date: 20210727
  Transmission Date: 20211014
  Serious: Yes (Other)
  Sender: FDA-Public Use
  Company Number: US-PFIZER INC-2021906458

PATIENT
  Age: 41 Year
  Sex: Female
  Weight: .45 kg

DRUGS (1)
  1. BOSULIF [Suspect]
     Active Substance: BOSUTINIB MONOHYDRATE
     Indication: PYODERMA GANGRENOSUM
     Dosage: 500 MG, 1X/DAY
     Route: 048
     Dates: start: 20210701

REACTIONS (5)
  - Crohn^s disease [Unknown]
  - Off label use [Unknown]
  - Vomiting [Unknown]
  - Nausea [Unknown]
  - Diarrhoea [Unknown]
